FAERS Safety Report 7367103-3 (Version None)
Quarter: 2011Q1

REPORT INFORMATION
  Report Type: 
  Country: None (occurrence: None)
  Receive Date: 20110322
  Receipt Date: 20110311
  Transmission Date: 20110831
  Serious: Yes (Hospitalization, Other)
  Sender: FDA-Public Use
  Company Number: US-CELGENEUS-163-C5013-11011633

PATIENT
  Sex: Male
  Weight: 68.554 kg

DRUGS (40)
  1. CC-5013\PLACEBO [Suspect]
     Dosage: 20 MILLIGRAM
     Route: 048
     Dates: start: 20100225, end: 20100304
  2. CC-5013\PLACEBO [Suspect]
     Dosage: 20 MILLIGRAM
     Route: 048
     Dates: start: 20100511, end: 20100519
  3. PREDNISONE [Suspect]
     Dosage: 10 MILLIGRAM
     Route: 048
     Dates: start: 20100225
  4. VICODIN [Concomitant]
     Dosage: 5-500MG
     Route: 048
     Dates: start: 20100304, end: 20100307
  5. ZOSYN [Concomitant]
     Dosage: 3.375 GRAM
     Route: 051
     Dates: start: 20100304, end: 20100307
  6. MORPHINE SULFATE [Concomitant]
     Dosage: 2 MILLIGRAM
     Route: 051
     Dates: start: 20100305, end: 20100305
  7. ALBUTEROL SULFATE AND IPRATROPIUM BROMIDE [Concomitant]
     Dosage: 0.5/2.5
     Route: 065
     Dates: start: 20100305, end: 20100307
  8. DIPENHYDRAMINE [Concomitant]
     Dosage: 25-50MG
     Route: 051
     Dates: start: 20100304, end: 20100307
  9. OXYGEN [Concomitant]
     Route: 055
  10. DILAUDID [Concomitant]
     Dosage: 0.5-1MG
     Route: 065
     Dates: start: 20100304, end: 20100306
  11. NITROGLYCERIN [Concomitant]
     Dosage: .4 MILLIGRAM
     Route: 060
     Dates: start: 20100304, end: 20100307
  12. NEXIUM [Concomitant]
     Dosage: 40 MILLIGRAM
     Route: 051
     Dates: start: 20100304, end: 20100307
  13. FLUCONAZOLE [Concomitant]
     Dosage: 100 MILLIGRAM
     Route: 065
  14. VANCOMYCIN [Concomitant]
     Route: 065
     Dates: start: 20100304, end: 20100306
  15. CC-5013\PLACEBO [Suspect]
     Indication: PROSTATE CANCER
     Dosage: 25 MILLIGRAM
     Route: 048
     Dates: start: 20100204
  16. PREDNISONE [Suspect]
     Dosage: 120 MILLIGRAM
     Route: 048
     Dates: start: 20100204
  17. DOCETAXEL [Suspect]
     Dosage: 105 MILLIGRAM
     Route: 065
     Dates: start: 20100225
  18. CALCIUM +D [Concomitant]
     Route: 048
     Dates: start: 20100307, end: 20100307
  19. CALCIUM GLUCONATE/DEXTROSE [Concomitant]
     Route: 051
     Dates: start: 20100304, end: 20100307
  20. SODIUM CHLORIDE [Concomitant]
     Dosage: 100ML/HR
     Route: 048
     Dates: start: 20100307, end: 20100307
  21. ALBUTEROL SULFATE [Concomitant]
     Dosage: 2.5 MILLIGRAM
     Route: 065
     Dates: start: 20100304, end: 20100305
  22. XANAX [Concomitant]
     Dosage: .5 MILLIGRAM
     Route: 048
     Dates: start: 20100304, end: 20100307
  23. POTASSIUM CHLORIDE [Concomitant]
     Dosage: 40 MILLIEQUIVALENTS
     Route: 065
     Dates: start: 20100304, end: 20100307
  24. DOCETAXEL [Suspect]
     Indication: PROSTATE CANCER
     Dosage: 135 MILLIGRAM
     Route: 065
     Dates: start: 20100204
  25. NEUPOGEN [Concomitant]
     Dosage: 480 MICROGRAM
     Route: 058
     Dates: start: 20100305, end: 20100307
  26. MAGNESIUM HYDROXIDE [Concomitant]
     Dosage: 30 MILLILITER
     Route: 048
     Dates: start: 20100304, end: 20100307
  27. SODIUM BIPHOSPHATE [Concomitant]
     Route: 065
     Dates: start: 20100304, end: 20100307
  28. FLOMAX [Concomitant]
     Dosage: .4 MILLIGRAM
     Route: 065
  29. PHENAZOPYRIDINE HCL TAB [Concomitant]
     Route: 065
  30. MAGNESIUM [Concomitant]
     Route: 065
     Dates: start: 20100304, end: 20100306
  31. PREDNISONE [Suspect]
     Dosage: 60 MILLIGRAM
     Route: 048
     Dates: start: 20100307, end: 20100307
  32. SOLU-MEDROL [Concomitant]
     Dosage: 40 MILLIGRAM
     Route: 051
     Dates: start: 20100306, end: 20100307
  33. SOLU-MEDROL [Concomitant]
     Dosage: 40 MILLIGRAM
     Route: 051
     Dates: start: 20100307, end: 20100307
  34. COLACE [Concomitant]
     Dosage: 100 MILLIGRAM
     Route: 048
     Dates: start: 20100304, end: 20100307
  35. NYSTATIN [Concomitant]
     Dosage: 5 MILLILITER
     Route: 048
  36. SOLU-MEDROL [Concomitant]
     Dosage: 60 MILLIGRAM
     Route: 051
     Dates: start: 20100305, end: 20100306
  37. BISACODYL [Concomitant]
     Dosage: 5 MILLIGRAM
     Route: 048
     Dates: start: 20100304, end: 20100307
  38. ACETAMINOPHEN [Concomitant]
     Dosage: 325-650MG
     Route: 048
     Dates: start: 20100304, end: 20100307
  39. DIPENHYDRAMINE [Concomitant]
     Dosage: 25-50MG
     Route: 048
     Dates: start: 20100304, end: 20100307
  40. COMPAZINE [Concomitant]
     Route: 065

REACTIONS (6)
  - NEUTROPENIA [None]
  - ABDOMINAL PAIN [None]
  - CHOLELITHIASIS [None]
  - CHILLS [None]
  - DEHYDRATION [None]
  - URINARY TRACT INFECTION [None]
